FAERS Safety Report 9787156 (Version 3)
Quarter: 2014Q1

REPORT INFORMATION
  Report Type: Spontaneous
  Country: SE (occurrence: SE)
  Receive Date: 20131228
  Receipt Date: 20140304
  Transmission Date: 20141002
  Serious: No
  Sender: FDA-Public Use
  Company Number: SE-TEVA-452098ISR

PATIENT
  Age: 79 Year
  Sex: Male

DRUGS (1)
  1. ENALAPRIL/HYDROCHLOROTHIAZIDE TEVA [Suspect]
     Indication: HYPERTENSION
     Dosage: 1 DOSAGE FORMS DAILY; 20 MG/12.5 MG
     Route: 048
     Dates: start: 20131104, end: 20131115

REACTIONS (1)
  - Heart rate decreased [Recovered/Resolved]
